FAERS Safety Report 13744112 (Version 1)
Quarter: 2017Q3

REPORT INFORMATION
  Report Type: Spontaneous
  Country: JP (occurrence: JP)
  Receive Date: 20170712
  Receipt Date: 20170712
  Transmission Date: 20171127
  Serious: Yes (Other)
  Sender: FDA-Public Use
  Company Number: JP-ALXN-A201707449AA

PATIENT
  Sex: Female

DRUGS (1)
  1. SOLIRIS [Suspect]
     Active Substance: ECULIZUMAB
     Indication: PAROXYSMAL NOCTURNAL HAEMOGLOBINURIA
     Dosage: UNK
     Route: 042

REACTIONS (10)
  - Cardiac disorder [Unknown]
  - Adverse drug reaction [Recovered/Resolved]
  - Abdominal pain upper [Unknown]
  - Mental disorder [Unknown]
  - Vitreous floaters [Unknown]
  - Neck pain [Unknown]
  - Headache [Unknown]
  - Renal disorder [Unknown]
  - Multi-organ disorder [Unknown]
  - Gallbladder disorder [Unknown]

NARRATIVE: CASE EVENT DATE: 201610
